FAERS Safety Report 10644742 (Version 1)
Quarter: 2014Q4

REPORT INFORMATION
  Report Type: Spontaneous
  Country: GB (occurrence: GB)
  Receive Date: 20141211
  Receipt Date: 20141211
  Transmission Date: 20150529
  Serious: Yes (Hospitalization)
  Sender: FDA-Public Use
  Company Number: GB-AUROBINDO-AUR-APL-2014-12843

PATIENT
  Age: 83 Year
  Sex: Female

DRUGS (5)
  1. LAXIDO [Concomitant]
     Active Substance: POLYETHYLENE GLYCOL 3350\POTASSIUM CHLORIDE\SODIUM BICARBONATE\SODIUM CHLORIDE
     Indication: PRODUCT USED FOR UNKNOWN INDICATION
     Dosage: UNK
     Route: 065
  2. NAPROXEN 250MG [Suspect]
     Active Substance: NAPROXEN
     Indication: RHEUMATOID ARTHRITIS
     Dosage: 500 MG, TWO TIMES A DAY
     Route: 048
     Dates: start: 20121201, end: 201409
  3. NAPROXEN 250MG [Suspect]
     Active Substance: NAPROXEN
     Dosage: 250 MG, ONCE A DAY
     Route: 048
     Dates: start: 201409, end: 20141124
  4. BISOPROLOL [Concomitant]
     Active Substance: BISOPROLOL
     Indication: PRODUCT USED FOR UNKNOWN INDICATION
     Dosage: UNK
     Route: 065
  5. OMEPRAZOLE. [Concomitant]
     Active Substance: OMEPRAZOLE
     Indication: PRODUCT USED FOR UNKNOWN INDICATION
     Dosage: UNK
     Route: 065

REACTIONS (4)
  - Abdominal pain [Unknown]
  - Gastrointestinal haemorrhage [Recovering/Resolving]
  - Rectal haemorrhage [Recovering/Resolving]
  - Thrombosis [Unknown]

NARRATIVE: CASE EVENT DATE: 20141123
